FAERS Safety Report 19498433 (Version 1)
Quarter: 2021Q3

REPORT INFORMATION
  Report Type: Report from Study
  Country: FR (occurrence: FR)
  Receive Date: 20210706
  Receipt Date: 20210706
  Transmission Date: 20211014
  Serious: Yes (Hospitalization, Other)
  Sender: FDA-Public Use
  Company Number: FR-TAKEDA-FR201610136

PATIENT
  Age: 56 Year
  Sex: Male
  Weight: 55 kg

DRUGS (21)
  1. LOPERAMIDE [Concomitant]
     Active Substance: LOPERAMIDE
     Indication: DIARRHOEA
     Dosage: 6 MG, 3X/DAY:TID
     Route: 048
  2. BICARBONATE DE SODIUM AGUETTANT [Concomitant]
     Active Substance: SODIUM BICARBONATE
     Indication: SUPPLEMENTATION THERAPY
     Dosage: 1 GRAM, TID
     Route: 048
     Dates: start: 20180921
  3. TEDUGLUTIDE [Suspect]
     Active Substance: TEDUGLUTIDE
     Indication: SHORT-BOWEL SYNDROME
     Dosage: 2.8 MG, 1X/DAY:QD
     Route: 058
     Dates: start: 20160629
  4. TEDUGLUTIDE [Suspect]
     Active Substance: TEDUGLUTIDE
     Indication: SHORT-BOWEL SYNDROME
     Dosage: 2.8 MG, 1X/DAY:QD
     Route: 058
     Dates: start: 20160629
  5. PANCREATIN [Concomitant]
     Active Substance: PANCRELIPASE
     Indication: PANCREATIC ENZYMES DECREASED
     Dosage: 25000 IU, 3X/DAY:TID
     Route: 048
  6. TARDYFERON [Concomitant]
     Active Substance: FERROUS SULFATE
     Indication: VITAMIN B COMPLEX DEFICIENCY
     Dosage: 80 MG, UNKNOWN
     Route: 048
  7. TEDUGLUTIDE [Suspect]
     Active Substance: TEDUGLUTIDE
     Indication: SHORT-BOWEL SYNDROME
     Dosage: 2.8 MG, 1X/DAY:QD
     Route: 058
     Dates: start: 20160629
  8. PN/IV [Concomitant]
     Indication: NUTRITIONAL SUPPLEMENTATION
     Dosage: 2 L, 5 DAYS A WEEK
     Route: 042
     Dates: start: 201604, end: 201607
  9. CREON [Concomitant]
     Active Substance: PANCRELIPASE AMYLASE\PANCRELIPASE LIPASE\PANCRELIPASE PROTEASE
     Indication: CROHN^S DISEASE
     Dosage: 2500 INTERNATIONAL UNIT, TID
     Route: 048
     Dates: start: 20190423
  10. ESOMEPRAZOLE. [Concomitant]
     Active Substance: ESOMEPRAZOLE MAGNESIUM
     Indication: PROPHYLAXIS AGAINST GASTROINTESTINAL ULCER
     Dosage: 40 MG, 1X/DAY:QD
     Route: 048
  11. PHOSPHORUS [Concomitant]
     Active Substance: PHOSPHORUS
     Indication: BLOOD PHOSPHORUS DECREASED
     Dosage: 50 GTT, 2X/DAY:BID
     Route: 048
  12. VITAMIN B12 [Concomitant]
     Active Substance: CYANOCOBALAMIN
     Indication: VITAMIN B12 DEFICIENCY
     Dosage: 1000 MG, 1X/WEEK
     Route: 048
  13. PHOSPHONEUROS [Concomitant]
     Active Substance: CALCIUM PHOSPHATE, DIBASIC, ANHYDROUS\MAGNESIUM GLYCEROPHOSPHATE\PHOSPHORIC ACID\SODIUM PHOSPHATE, DIBASIC
     Indication: SUPPLEMENTATION THERAPY
     Dosage: 50 GTT DROPS, BID
     Route: 048
     Dates: start: 20190423
  14. IRON [Concomitant]
     Active Substance: IRON
     Indication: IRON DEFICIENCY
     Dosage: 80 MG, 2X/DAY:BID
     Route: 048
  15. POTASSIUM [Concomitant]
     Active Substance: POTASSIUM
     Indication: HYPOKALAEMIA
     Dosage: 600 MG, 2X/DAY:BID
     Route: 048
  16. CALCIUM + VITAMIN D [Concomitant]
     Active Substance: CALCIUM\VITAMIN D
     Indication: CALCIUM DEFICIENCY
     Dosage: 1000 MG, 3X/DAY:TID
     Route: 048
  17. CALCIUM + VITAMIN D [Concomitant]
     Active Substance: CALCIUM\VITAMIN D
     Indication: VITAMIN D DEFICIENCY
  18. MAG 2 [Concomitant]
     Active Substance: MAGNESIUM
     Indication: SUPPLEMENTATION THERAPY
     Dosage: 100 MILLIGRAM, TID
     Route: 048
     Dates: start: 20180921
  19. TEDUGLUTIDE [Suspect]
     Active Substance: TEDUGLUTIDE
     Indication: SHORT-BOWEL SYNDROME
     Dosage: 2.8 MG, 1X/DAY:QD
     Route: 058
     Dates: start: 20160629
  20. PN/IV [Concomitant]
     Dosage: 2 L, 3 DAYS A WEEK
     Route: 042
     Dates: start: 201505, end: 201604
  21. ESOMEPRAZOLE. [Concomitant]
     Active Substance: ESOMEPRAZOLE MAGNESIUM
     Dosage: 40 MG, 1X/DAY:QD
     Route: 048

REACTIONS (3)
  - Vomiting [Recovered/Resolved]
  - Abdominal pain [Recovered/Resolved]
  - Abdominal hernia [Recovered/Resolved]

NARRATIVE: CASE EVENT DATE: 20160712
